FAERS Safety Report 8218855-1 (Version None)
Quarter: 2012Q1

REPORT INFORMATION
  Report Type: 
  Country: None (occurrence: None)
  Receive Date: 20120319
  Receipt Date: 20120314
  Transmission Date: 20120608
  Serious: Yes (Hospitalization)
  Sender: FDA-Public Use
  Company Number: PHHY2012FR003301

PATIENT
  Sex: Male
  Weight: 165 kg

DRUGS (2)
  1. EXFORGE [Suspect]
     Route: 048
     Dates: start: 20110101
  2. RASILEZ HCT [Suspect]
     Indication: HYPERTENSION
     Dosage: 1 DF (150 MG ALISKIREN AND 12.5 MG HYDRO), UNK
     Route: 048
     Dates: start: 20110101, end: 20120130

REACTIONS (6)
  - BRONCHOSPASM [None]
  - FATIGUE [None]
  - DYSPNOEA [None]
  - CARDIAC FLUTTER [None]
  - PALPITATIONS [None]
  - HYPERTENSION [None]
